FAERS Safety Report 6267715-4 (Version None)
Quarter: 2009Q3

REPORT INFORMATION
  Report Type: 
  Country: None (occurrence: None)
  Receive Date: 20090714
  Receipt Date: 20090709
  Transmission Date: 20100115
  Serious: Yes (Life-Threatening, Hospitalization, Disabling)
  Sender: FDA-Public Use
  Company Number: PHHO2008BR14476

PATIENT
  Sex: Female
  Weight: 48.9 kg

DRUGS (1)
  1. AMN107 AMN+CAP [Suspect]
     Indication: CHRONIC MYELOID LEUKAEMIA
     Dosage: 400 MG, QD
     Route: 048
     Dates: start: 20070606, end: 20090108

REACTIONS (17)
  - ABDOMINAL PAIN [None]
  - ANAEMIA [None]
  - CHRONIC MYELOID LEUKAEMIA [None]
  - COLECTOMY [None]
  - COLON CANCER [None]
  - DRUG INEFFECTIVE [None]
  - GASTRIC XANTHOMA [None]
  - GASTRITIS [None]
  - HEPATIC NECROSIS [None]
  - HEPATOMEGALY [None]
  - HIATUS HERNIA [None]
  - METASTASES TO LIVER [None]
  - NAUSEA [None]
  - PYREXIA [None]
  - RECTAL HAEMORRHAGE [None]
  - REFLUX OESOPHAGITIS [None]
  - TUMOUR EXCISION [None]
